FAERS Safety Report 10904718 (Version 1)
Quarter: 2015Q1

REPORT INFORMATION
  Report Type: Report from Study
  Country: DE (occurrence: DE)
  Receive Date: 20150311
  Receipt Date: 20150311
  Transmission Date: 20150721
  Serious: Yes (Hospitalization)
  Sender: FDA-Public Use
  Company Number: DE-ABBVIE-15P-062-1358793-00

PATIENT
  Sex: Male

DRUGS (2)
  1. OMEPRAZOLE (ANTRA MUPS) [Concomitant]
     Indication: PRODUCT USED FOR UNKNOWN INDICATION
  2. DUODOPA [Suspect]
     Active Substance: CARBIDOPA\LEVODOPA
     Indication: PARKINSON^S DISEASE
     Dosage: MD 5.0 ML, CRD 4.0 ML/HR, ED 4.0 ML
     Route: 050
     Dates: start: 20131010

REACTIONS (1)
  - Inguinal hernia [Not Recovered/Not Resolved]
